FAERS Safety Report 6322061-5 (Version None)
Quarter: 2009Q3

REPORT INFORMATION
  Report Type: 
  Country: None (occurrence: None)
  Receive Date: 20090824
  Receipt Date: 20090820
  Transmission Date: 20100115
  Serious: Yes (Death, Hospitalization)
  Sender: FDA-Public Use
  Company Number: GB-WYE-G04280409

PATIENT
  Sex: Male

DRUGS (6)
  1. GEMTUZUMAB OZOGAMICIN [Suspect]
     Dosage: UNKNOWN
  2. ETOPOSIDE [Concomitant]
     Dosage: UNKNOWN
  3. NEUPOGEN [Concomitant]
     Dosage: UNKNOWN
  4. DAUNORUBICIN HCL [Concomitant]
     Dosage: UNKNOWN
  5. FLUDARABINE PHOSPHATE [Concomitant]
     Dosage: UNKNOWN
  6. ARA-C [Concomitant]
     Dosage: UNKNOWN

REACTIONS (2)
  - PNEUMOCYSTIS JIROVECI PNEUMONIA [None]
  - PULMONARY HAEMORRHAGE [None]
